FAERS Safety Report 20667062 (Version 1)
Quarter: 2022Q2

REPORT INFORMATION
  Report Type: Spontaneous
  Country: US (occurrence: US)
  Receive Date: 20220404
  Receipt Date: 20220404
  Transmission Date: 20220720
  Serious: Yes (Hospitalization, Other)
  Sender: FDA-Public Use
  Company Number: US-SANOFI-01037889

PATIENT
  Age: 78 Year
  Sex: Female

DRUGS (1)
  1. LANTUS [Suspect]
     Active Substance: INSULIN GLARGINE
     Indication: Diabetes mellitus
     Dosage: 80 IU, QD
     Dates: start: 2002

REACTIONS (6)
  - Thyroid cancer [Unknown]
  - Thyroidectomy [Unknown]
  - Coronary artery bypass [Unknown]
  - Pneumothorax [Unknown]
  - Tracheostomy [Unknown]
  - Dyspnoea [Unknown]

NARRATIVE: CASE EVENT DATE: 20140101
